FAERS Safety Report 7869043 (Version 3)
Quarter: 2012Q4

REPORT INFORMATION
  Report Type: Report from Study
  Country: MX (occurrence: MX)
  Receive Date: 20110324
  Receipt Date: 20121115
  Transmission Date: 20130627
  Serious: Yes (Hospitalization)
  Sender: FDA-Public Use
  Company Number: MX-ABBOTT-11P-107-0713176-00

PATIENT
  Age: 1 Year
  Sex: Female

DRUGS (3)
  1. RITONAVIR ORAL SOLUTION [Suspect]
     Indication: HIV INFECTION
     Route: 048
  2. ATAZANAVIR [Concomitant]
     Indication: HIV INFECTION
     Route: 048
  3. ISONIAZIDE [Concomitant]
     Indication: PROPHYLAXIS
     Dates: start: 20101001, end: 20110401

REACTIONS (2)
  - Pneumonia [Recovered/Resolved]
  - Myocarditis [Recovered/Resolved]
